APPROVED DRUG PRODUCT: PROGLYCEM
Active Ingredient: DIAZOXIDE
Strength: 50MG
Dosage Form/Route: CAPSULE;ORAL
Application: N017425 | Product #001
Applicant: TEVA BRANDED PHARMACEUTICAL PRODUCTS R AND D INC
Approved: Approved Prior to Jan 1, 1982 | RLD: No | RS: No | Type: DISCN